FAERS Safety Report 7455221-0 (Version None)
Quarter: 2011Q2

REPORT INFORMATION
  Report Type: 
  Country: None (occurrence: None)
  Receive Date: 20110503
  Receipt Date: 20110419
  Transmission Date: 20111010
  Serious: Yes (Other)
  Sender: FDA-Public Use
  Company Number: NL-MYLANLABS-2011S1008159

PATIENT
  Age: 62 Year
  Sex: Male

DRUGS (2)
  1. AZATHIOPRINE [Suspect]
     Indication: COLITIS ULCERATIVE
     Dosage: 1 DD 100 MG
     Route: 048
     Dates: start: 20110312
  2. AZATHIOPRINE [Concomitant]

REACTIONS (5)
  - PRODUCT SUBSTITUTION ISSUE [None]
  - THERAPEUTIC RESPONSE UNEXPECTED WITH DRUG SUBSTITUTION [None]
  - HEPATIC ENZYME INCREASED [None]
  - HEAD DISCOMFORT [None]
  - ABDOMINAL DISCOMFORT [None]
